FAERS Safety Report 8857979 (Version 1)
Quarter: 2012Q4

REPORT INFORMATION
  Report Type: 
  Country: US (occurrence: US)
  Receive Date: 20121024
  Receipt Date: 20121024
  Transmission Date: 20130627
  Serious: No
  Sender: FDA-Public Use
  Company Number: US-AMGEN-USASP2012004308

PATIENT
  Sex: Female
  Weight: 97.96 kg

DRUGS (8)
  1. ENBREL [Suspect]
     Indication: PRODUCT USED FOR UNKNOWN INDICATION
     Dosage: 50 mg, qwk
     Route: 058
  2. PLAQUENIL                          /00072602/ [Concomitant]
     Dosage: 200 mg, UNK
  3. MYCOPHENOLATE [Concomitant]
     Dosage: 250 mg, UNK
  4. VITAMIN D /00107901/ [Concomitant]
     Dosage: 50000 IU, UNK
  5. CENTRUM                            /00554501/ [Concomitant]
  6. VITAMIN C                          /00008001/ [Concomitant]
     Dosage: 250 mg, UNK
  7. FLOVENT [Concomitant]
     Dosage: 110 mug, UNK
  8. PROAIR HFA [Concomitant]

REACTIONS (1)
  - Nasopharyngitis [Recovered/Resolved]
